FAERS Safety Report 12495410 (Version 2)
Quarter: 2016Q2

REPORT INFORMATION
  Report Type: Spontaneous
  Country: TR (occurrence: TR)
  Receive Date: 20160624
  Receipt Date: 20160630
  Transmission Date: 20160815
  Serious: Yes (Other)
  Sender: FDA-Public Use
  Company Number: TR-ACTAVIS-2016-13875

PATIENT
  Age: 26 Year
  Sex: Female

DRUGS (1)
  1. REMERON [Suspect]
     Active Substance: MIRTAZAPINE
     Indication: GENERALISED ANXIETY DISORDER
     Dosage: 30 MG, DAILY
     Route: 065

REACTIONS (1)
  - Papilloedema [Recovered/Resolved]
